FAERS Safety Report 18810703 (Version 2)
Quarter: 2025Q3

REPORT INFORMATION
  Report Type: Spontaneous
  Country: US (occurrence: US)
  Receive Date: 20210130
  Receipt Date: 20250701
  Transmission Date: 20251021
  Serious: Yes (Hospitalization, Other)
  Sender: AUROBINDO
  Company Number: US-MLMSERVICE-20210120-2687715-1

PATIENT
  Age: 70 Year
  Sex: Female

DRUGS (2)
  1. METHYLPHENIDATE HYDROCHLORIDE [Suspect]
     Active Substance: METHYLPHENIDATE HYDROCHLORIDE
     Indication: Mental impairment
     Route: 065
  2. METHYLPHENIDATE HYDROCHLORIDE [Suspect]
     Active Substance: METHYLPHENIDATE HYDROCHLORIDE
     Route: 042

REACTIONS (8)
  - Renal ischaemia [Recovering/Resolving]
  - Labile hypertension [Recovering/Resolving]
  - Acute kidney injury [Recovering/Resolving]
  - Renal arteriosclerosis [Recovering/Resolving]
  - Antiphospholipid syndrome [Recovering/Resolving]
  - Condition aggravated [Recovering/Resolving]
  - Escherichia urinary tract infection [Unknown]
  - Acute pulmonary oedema [Unknown]
